FAERS Safety Report 4951188-5 (Version None)
Quarter: 2006Q1

REPORT INFORMATION
  Report Type: 
  Country: None (occurrence: None)
  Receive Date: 20060315
  Receipt Date: 20060302
  Transmission Date: 20060701
  Serious: Yes (Hospitalization)
  Sender: FDA-Public Use
  Company Number: 2006RR-01723

PATIENT
  Age: 15 Year
  Sex: Male

DRUGS (5)
  1. CEFACLOR [Suspect]
     Indication: FOLLICULITIS
     Dosage: 600 MG, QD
     Dates: start: 20020920, end: 20020923
  2. VALPROATE SODIUM [Concomitant]
  3. CARBAMAZEPINE [Concomitant]
  4. BETAMETHASONE [Concomitant]
  5. CLONAZEPAM [Concomitant]

REACTIONS (3)
  - LYMPHOCYTE STIMULATION TEST POSITIVE [None]
  - PYREXIA [None]
  - RASH [None]
